FAERS Safety Report 7603587-0 (Version None)
Quarter: 2011Q3

REPORT INFORMATION
  Report Type: 
  Country: None (occurrence: None)
  Receive Date: 20110711
  Receipt Date: 20110711
  Transmission Date: 20111222
  Serious: Yes (Other)
  Sender: FDA-Public Use
  Company Number: None

PATIENT
  Sex: Male
  Weight: 77.0208 kg

DRUGS (1)
  1. ACETAMINOPHEN W/CODEINE 300/30MG [Suspect]

REACTIONS (4)
  - DRUG INEFFECTIVE [None]
  - DIARRHOEA [None]
  - VOMITING [None]
  - NAUSEA [None]
